FAERS Safety Report 9852296 (Version 1)
Quarter: 2014Q1

REPORT INFORMATION
  Report Type: Spontaneous
  Country: US (occurrence: US)
  Receive Date: 20140129
  Receipt Date: 20140129
  Transmission Date: 20141002
  Serious: Yes (Hospitalization, Other)
  Sender: FDA-Public Use
  Company Number: US-SA-2014SA010973

PATIENT
  Age: 55 Year
  Sex: Female

DRUGS (3)
  1. LANTUS SOLOSTAR [Suspect]
     Dosage: DOSE:62 UNIT(S)
     Route: 058
  2. AMARYL [Suspect]
     Route: 065
  3. SOLOSTAR [Concomitant]

REACTIONS (6)
  - Fall [Unknown]
  - Upper limb fracture [Unknown]
  - Upper limb fracture [Unknown]
  - Eye disorder [Unknown]
  - Hallucination [Unknown]
  - Mobility decreased [Unknown]
